FAERS Safety Report 9676140 (Version 2)
Quarter: 2013Q4

REPORT INFORMATION
  Report Type: Spontaneous
  Country: US (occurrence: None)
  Receive Date: 20131105
  Receipt Date: 20131126
  Transmission Date: 20140711
  Serious: Yes (Other)
  Sender: FDA-Public Use
  Company Number: 2013US002765

PATIENT
  Age: 70 Year
  Sex: Female

DRUGS (13)
  1. ICLUSIG (PONATINIB) TABLET, 15MG [Suspect]
     Indication: CHRONIC MYELOID LEUKAEMIA
     Dosage: 2X 15 MG DAILY, ORAL
     Route: 048
     Dates: start: 20130508, end: 20131024
  2. BACLOFEN [Suspect]
     Indication: MUSCLE SPASMS
     Route: 048
  3. ALBUTEROL SULFATE (ALBUTEROL SULFATE) [Concomitant]
  4. ALLOPURINOL (ALLOPURINOL) [Concomitant]
  5. BENICAR (OLMESARTAN MEDOXOMIL) [Concomitant]
  6. DULERA (FORMOTEROL FUMARATE, MOMETASONE FUROATE) [Concomitant]
  7. GABAPENTIN (GABAPENTIN) [Concomitant]
  8. LASIX (FUROSEMIDE SODIUM) [Concomitant]
  9. LIPITOR (ATORVASTATIN CALCIUM) [Concomitant]
  10. PLAVIX (CLOPIDOGREL BISULFATE) [Concomitant]
  11. PRESERVISION AREDS (ASCORBIC ACID, BETACAROTENE, CUPRIC OXIDE, TOCOPHERYL ACETATE, ZINC OXIDE) [Concomitant]
  12. PROCHLORPERAZINE (PROCHLORPERAZINE MALEATE) [Concomitant]
  13. VITAMIN D3 (VITAMIN D3) [Concomitant]

REACTIONS (18)
  - Hallucination [None]
  - Hypoaesthesia [None]
  - Hallucination, visual [None]
  - Pancreatitis [None]
  - Sedation [None]
  - Neuropathy peripheral [None]
  - Liver function test abnormal [None]
  - Hypophagia [None]
  - Abdominal pain [None]
  - Back pain [None]
  - Muscle spasms [None]
  - Arthralgia [None]
  - Myalgia [None]
  - Hypoaesthesia [None]
  - Paraesthesia [None]
  - Nausea [None]
  - Vomiting [None]
  - Oedema [None]
